FAERS Safety Report 25496955 (Version 2)
Quarter: 2025Q3

REPORT INFORMATION
  Report Type: Spontaneous
  Country: EU (occurrence: EU)
  Receive Date: 20250701
  Receipt Date: 20250912
  Transmission Date: 20251021
  Serious: Yes (Other)
  Sender: RANBAXY
  Company Number: EU-AMGEN-DEUNI2017093551

PATIENT
  Sex: Male
  Weight: 78 kg

DRUGS (24)
  1. LENALIDOMIDE [Suspect]
     Active Substance: LENALIDOMIDE
     Indication: Plasma cell myeloma
     Route: 065
  2. LENALIDOMIDE [Suspect]
     Active Substance: LENALIDOMIDE
     Route: 065
     Dates: start: 20161108, end: 20170612
  3. CARFILZOMIB [Suspect]
     Active Substance: CARFILZOMIB
     Indication: Plasma cell myeloma
     Route: 040
     Dates: start: 20161107, end: 20161108
  4. CARFILZOMIB [Suspect]
     Active Substance: CARFILZOMIB
     Route: 065
     Dates: start: 20161114, end: 20170307
  5. CARFILZOMIB [Suspect]
     Active Substance: CARFILZOMIB
     Route: 065
     Dates: start: 20170327
  6. DEXAMETHASONE [Suspect]
     Active Substance: DEXAMETHASONE
     Indication: Plasma cell myeloma
     Route: 065
     Dates: start: 20161107, end: 20170213
  7. DEXAMETHASONE [Suspect]
     Active Substance: DEXAMETHASONE
     Route: 065
     Dates: start: 20170220, end: 20170220
  8. DEXAMETHASONE [Suspect]
     Active Substance: DEXAMETHASONE
     Route: 065
     Dates: start: 20170227, end: 20170613
  9. XGEVA [Concomitant]
     Active Substance: DENOSUMAB
     Indication: Prophylaxis
     Dosage: 120 MILLIGRAM, QMO
     Route: 065
     Dates: start: 20180111
  10. ENOXAPARIN SODIUM [Concomitant]
     Active Substance: ENOXAPARIN SODIUM
     Indication: Prophylaxis
     Dosage: 40 MG, QD
     Route: 065
     Dates: start: 20161108, end: 20220824
  11. ACYCLOVIR [Concomitant]
     Active Substance: ACYCLOVIR
     Indication: Prophylaxis
     Dosage: 200 MG, TID, THREE TIMES PER DAY
     Route: 065
     Dates: start: 20161107
  12. RANEXA [Concomitant]
     Active Substance: RANOLAZINE
     Indication: Coronary artery disease
     Dosage: 375 MG, BID
     Route: 065
     Dates: start: 201504, end: 20210324
  13. VITAMIN B12 [Concomitant]
     Active Substance: CYANOCOBALAMIN
     Indication: Product used for unknown indication
     Dosage: 1000 MG, QMO
     Route: 065
     Dates: start: 2015
  14. Axigran [Concomitant]
     Indication: Prophylaxis
     Route: 065
     Dates: start: 20161107, end: 20201119
  15. PAMIDRONATE DISODIUM [Concomitant]
     Active Substance: PAMIDRONATE DISODIUM
     Indication: Prophylaxis
     Dosage: 60 MG, QMO
     Route: 065
     Dates: start: 20150522, end: 20171219
  16. CALCIUM CARBONATE\CHOLECALCIFEROL [Concomitant]
     Active Substance: CALCIUM CARBONATE\CHOLECALCIFEROL
     Indication: Prophylaxis
     Dosage: 880 INTERNATIONAL UNIT, QD, 1000/880 IU
     Route: 065
     Dates: start: 20170110
  17. PANTOPRAZOLE SODIUM [Concomitant]
     Active Substance: PANTOPRAZOLE SODIUM
     Indication: Prophylaxis
     Dosage: 40 MG, QD, DAILY
     Route: 065
     Dates: start: 201504
  18. BUDESONIDE [Concomitant]
     Active Substance: BUDESONIDE
     Indication: Chronic obstructive pulmonary disease
     Dosage: 0.4 MG, BID, TWICE PER DAY 0,1 MG/-0,2 MG/-0,4 MG
     Route: 065
  19. Cyclocaps salbutamol [Concomitant]
     Indication: Chronic obstructive pulmonary disease
     Dosage: 200 MG, QD, DAILY
     Route: 065
  20. Formo [Concomitant]
     Indication: Chronic obstructive pulmonary disease
     Dosage: 12 MICROGRAM, BID
     Route: 065
  21. TORSEMIDE [Concomitant]
     Active Substance: TORSEMIDE
     Indication: Chronic kidney disease
     Dosage: 5 MILLIGRAM, QD
     Route: 065
     Dates: start: 20171205
  22. PRIVIGEN [Concomitant]
     Active Substance: HUMAN IMMUNOGLOBULIN G
     Indication: Prophylaxis
     Dosage: 200 MILLIGRAM, QMO
     Route: 065
     Dates: start: 20200724
  23. ASPIRIN [Concomitant]
     Active Substance: ASPIRIN
     Indication: Prophylaxis
     Dosage: 100 MILLIGRAM, QD
     Route: 065
     Dates: start: 20200826
  24. Alfacalcidol Medice [Concomitant]
     Indication: Chronic kidney disease
     Dosage: 0.25 MICROGRAM, QD, -1, 0 MICROGRAM
     Route: 065
     Dates: start: 20211006

REACTIONS (1)
  - Leukopenia [Recovered/Resolved]

NARRATIVE: CASE EVENT DATE: 20170606
